FAERS Safety Report 19119904 (Version 2)
Quarter: 2021Q3

REPORT INFORMATION
  Report Type: Other
  Country: JP (occurrence: JP)
  Receive Date: 20210412
  Receipt Date: 20210805
  Transmission Date: 20211014
  Serious: Yes (Hospitalization)
  Sender: FDA-Public Use
  Company Number: JP-ACI HEALTHCARE LIMITED-2109181

PATIENT
  Age: 92 Year
  Sex: Female

DRUGS (9)
  1. VALPROIC ACID. [Suspect]
     Active Substance: VALPROIC ACID
     Route: 065
  2. AZOSEMIDE [Suspect]
     Active Substance: AZOSEMIDE
     Route: 065
  3. MAGNESIUM OXIDE. [Suspect]
     Active Substance: MAGNESIUM OXIDE
     Route: 065
  4. SERTRALINE HYDROCHLORIDE. [Suspect]
     Active Substance: SERTRALINE HYDROCHLORIDE
     Indication: PRODUCT USED FOR UNKNOWN INDICATION
     Route: 065
  5. ASPIRIN. [Suspect]
     Active Substance: ASPIRIN
     Route: 065
  6. AMLODIPINE [Suspect]
     Active Substance: AMLODIPINE BESYLATE
     Route: 065
  7. CLOPIDOGREL [Suspect]
     Active Substance: CLOPIDOGREL BISULFATE
     Route: 065
  8. SENNOSIDES. [Suspect]
     Active Substance: SENNOSIDES
     Route: 065
  9. BISOPROLOL. [Suspect]
     Active Substance: BISOPROLOL FUMARATE
     Route: 065

REACTIONS (3)
  - Treatment noncompliance [Unknown]
  - General physical health deterioration [Recovering/Resolving]
  - Cognitive disorder [Unknown]
